FAERS Safety Report 19279852 (Version 1)
Quarter: 2021Q2

REPORT INFORMATION
  Report Type: Report from Study
  Country: BR (occurrence: BR)
  Receive Date: 20210520
  Receipt Date: 20210520
  Transmission Date: 20210717
  Serious: Yes (Hospitalization)
  Sender: FDA-Public Use
  Company Number: BR-JNJFOC-20210525297

PATIENT
  Age: 29 Year
  Sex: Male
  Weight: 70 kg

DRUGS (6)
  1. DESVENLAFAXINE. [Concomitant]
     Active Substance: DESVENLAFAXINE
     Indication: MAJOR DEPRESSION
     Dosage: DOSE FREQUENCY 1
     Route: 048
     Dates: start: 2020
  2. SPRAVATO [Suspect]
     Active Substance: ESKETAMINE
     Indication: DEPRESSION
     Dates: end: 20210511
  3. SPRAVATO [Suspect]
     Active Substance: ESKETAMINE
     Indication: MAJOR DEPRESSION
     Dates: start: 20210426
  4. TOPIRAMATE. [Concomitant]
     Active Substance: TOPIRAMATE
     Indication: MAJOR DEPRESSION
     Dosage: DOSE FREQUENCY 1
     Route: 048
     Dates: start: 2020
  5. TRAZODONE [Concomitant]
     Active Substance: TRAZODONE HYDROCHLORIDE
     Indication: MAJOR DEPRESSION
     Dosage: DOSE FREQUENCY 1
     Route: 048
     Dates: start: 2020
  6. BUPROPION. [Concomitant]
     Active Substance: BUPROPION
     Indication: MAJOR DEPRESSION
     Dosage: DOSE FREQUENCY 1
     Route: 048
     Dates: start: 2020

REACTIONS (1)
  - Suicidal ideation [Unknown]
